FAERS Safety Report 5724989-3 (Version None)
Quarter: 2008Q2

REPORT INFORMATION
  Report Type: 
  Country: None (occurrence: None)
  Receive Date: 20080429
  Receipt Date: 20080418
  Transmission Date: 20081010
  Serious: Yes (Hospitalization)
  Sender: FDA-Public Use
  Company Number: 2008AL002370

PATIENT
  Age: 47 Year
  Sex: Female

DRUGS (4)
  1. FLUOXETINE [Suspect]
     Indication: DEPRESSION
     Dosage: 20 MG;QD;PO
     Route: 048
  2. LEVOMEPROMAZINE [Concomitant]
  3. HALOPERIDOL [Concomitant]
  4. OXYCODONE HCL [Concomitant]

REACTIONS (12)
  - ABDOMINAL PAIN [None]
  - ACTIVITIES OF DAILY LIVING IMPAIRED [None]
  - AGITATION [None]
  - AKATHISIA [None]
  - ANXIETY [None]
  - EMOTIONAL DISTRESS [None]
  - FATIGUE [None]
  - ILL-DEFINED DISORDER [None]
  - INSOMNIA [None]
  - NAUSEA [None]
  - RESTLESSNESS [None]
  - VOMITING [None]
